FAERS Safety Report 24237324 (Version 2)
Quarter: 2024Q3

REPORT INFORMATION
  Report Type: Spontaneous
  Country: JP (occurrence: JP)
  Receive Date: 20240822
  Receipt Date: 20240904
  Transmission Date: 20241017
  Serious: Yes (Hospitalization, Other)
  Sender: BRISTOL MYERS SQUIBB
  Company Number: JP-BRISTOL-MYERS SQUIBB COMPANY-2024-131298

PATIENT
  Age: 9 Decade
  Sex: Male

DRUGS (3)
  1. POMALYST [Suspect]
     Active Substance: POMALIDOMIDE
     Indication: Plasma cell myeloma refractory
     Dosage: 1 CAPSULE
     Route: 048
     Dates: start: 20231101
  2. POMALYST [Suspect]
     Active Substance: POMALIDOMIDE
     Dosage: 3CP
     Route: 048
     Dates: start: 20240817, end: 20240817
  3. LENADEX [Suspect]
     Active Substance: DEXAMETHASONE ACETATE
     Indication: Plasma cell myeloma refractory
     Route: 048
     Dates: start: 20231101

REACTIONS (6)
  - Overdose [Recovered/Resolved]
  - Hand fracture [Not Recovered/Not Resolved]
  - Spinal compression fracture [Recovered/Resolved with Sequelae]
  - White blood cell count decreased [Not Recovered/Not Resolved]
  - Platelet count decreased [Not Recovered/Not Resolved]
  - Pneumonia [Recovered/Resolved]

NARRATIVE: CASE EVENT DATE: 20240301
